FAERS Safety Report 9766095 (Version 1)
Quarter: 2013Q4

REPORT INFORMATION
  Report Type: Spontaneous
  Country: US (occurrence: US)
  Receive Date: 20131217
  Receipt Date: 20131217
  Transmission Date: 20140711
  Serious: No
  Sender: FDA-Public Use
  Company Number: US-GLAXOSMITHKLINE-A1018418A

PATIENT
  Age: 62 Year
  Sex: Male

DRUGS (5)
  1. VOTRIENT [Suspect]
     Indication: RENAL CELL CARCINOMA
     Dosage: 600MG PER DAY
     Route: 048
     Dates: start: 20120710
  2. AMITRIPTYLINE [Concomitant]
  3. NORVASC [Concomitant]
  4. ZETIA [Concomitant]
  5. BABY ASPIRIN [Concomitant]

REACTIONS (1)
  - Influenza [Recovered/Resolved]
